FAERS Safety Report 6394333-X (Version None)
Quarter: 2009Q4

REPORT INFORMATION
  Report Type: 
  Country: None (occurrence: None)
  Receive Date: 20091006
  Receipt Date: 20090921
  Transmission Date: 20100525
  Serious: Yes (Hospitalization)
  Sender: FDA-Public Use
  Company Number: 2009002873

PATIENT
  Age: 61 Year
  Sex: Male

DRUGS (2)
  1. TARCEVA [Suspect]
     Indication: LUNG NEOPLASM MALIGNANT
     Dosage: (150 MG,QD), ORAL
     Route: 048
     Dates: start: 20090801, end: 20090812
  2. PARACETAMOL (PARACETAMOL) [Concomitant]

REACTIONS (2)
  - TACHYCARDIA [None]
  - TACHYPNOEA [None]
